FAERS Safety Report 5805250-5 (Version None)
Quarter: 2008Q3

REPORT INFORMATION
  Report Type: 
  Country: None (occurrence: None)
  Receive Date: 20080703
  Receipt Date: 20080619
  Transmission Date: 20090109
  Serious: Yes (Hospitalization)
  Sender: FDA-Public Use
  Company Number: 2008-GWUS-0428

PATIENT
  Age: 64 Year
  Sex: Male

DRUGS (3)
  1. ALDARA [Suspect]
     Indication: ACTINIC KERATOSIS
     Dosage: APPLICATION - 5XW - TOPICAL
     Route: 061
     Dates: start: 20080609, end: 20080614
  2. MOTRIN [Suspect]
     Indication: PAIN
     Dosage: 600 MG - TID - PO
     Route: 048
     Dates: start: 20080616
  3. ACYCLOVIR [Suspect]
     Indication: HERPES SIMPLEX
     Dosage: 400 MG - TID - PO
     Route: 048
     Dates: start: 20080616

REACTIONS (10)
  - APPLICATION SITE EROSION [None]
  - APPLICATION SITE INFLAMMATION [None]
  - APPLICATION SITE IRRITATION [None]
  - APPLICATION SITE PAIN [None]
  - APPLICATION SITE SWELLING [None]
  - BURNING SENSATION [None]
  - HERPES SIMPLEX [None]
  - HYPERHIDROSIS [None]
  - NAUSEA [None]
  - PAIN IN JAW [None]
